FAERS Safety Report 10924019 (Version 2)
Quarter: 2015Q2

REPORT INFORMATION
  Report Type: Spontaneous
  Country: US (occurrence: US)
  Receive Date: 20150318
  Receipt Date: 20150526
  Transmission Date: 20150821
  Serious: No
  Sender: FDA-Public Use
  Company Number: US-JNJFOC-20140212780

PATIENT
  Age: 68 Year
  Sex: Female

DRUGS (3)
  1. VANCOMYCIN [Concomitant]
     Active Substance: VANCOMYCIN
     Indication: CLOSTRIDIUM DIFFICILE INFECTION
     Route: 045
  2. SPORANOX [Suspect]
     Active Substance: ITRACONAZOLE\SODIUM CHLORIDE
     Indication: BLASTOMYCOSIS
     Route: 065
     Dates: start: 20140217
  3. AMPHOTERICIN [Concomitant]
     Active Substance: AMPHOTERICIN B
     Indication: CLOSTRIDIUM DIFFICILE INFECTION
     Route: 042

REACTIONS (2)
  - Wrong technique in drug usage process [Recovered/Resolved]
  - Feeding tube complication [Not Recovered/Not Resolved]

NARRATIVE: CASE EVENT DATE: 20140218
